FAERS Safety Report 7834917-2 (Version None)
Quarter: 2011Q4

REPORT INFORMATION
  Report Type: 
  Country: None (occurrence: None)
  Receive Date: 20111024
  Receipt Date: 20111018
  Transmission Date: 20120403
  Serious: Yes (Hospitalization)
  Sender: FDA-Public Use
  Company Number: JP-JNJFOC-20111007159

PATIENT
  Age: 71 Year
  Sex: Female

DRUGS (2)
  1. DOXIL [Suspect]
     Indication: PRODUCT USED FOR UNKNOWN INDICATION
     Dosage: CYCLE 2
     Route: 042
     Dates: start: 20110909, end: 20110909
  2. DOXIL [Suspect]
     Dosage: CYCLE 1
     Route: 042
     Dates: start: 20110701, end: 20110701

REACTIONS (1)
  - INTERSTITIAL LUNG DISEASE [None]
